FAERS Safety Report 16589093 (Version 3)
Quarter: 2019Q4

REPORT INFORMATION
  Report Type: Spontaneous
  Country: JP (occurrence: JP)
  Receive Date: 20190718
  Receipt Date: 20191209
  Transmission Date: 20200122
  Serious: Yes (Other)
  Sender: FDA-Public Use
  Company Number: JP-TEVA-2019-JP-1080053

PATIENT
  Age: 38 Year
  Sex: Male
  Weight: 89.8 kg

DRUGS (4)
  1. K-SUPPLY [Concomitant]
     Active Substance: POTASSIUM CHLORIDE
     Indication: HYPOKALAEMIA
     Dosage: 4 DOSAGE FORMS DAILY;
  2. VESANOID [Concomitant]
     Active Substance: TRETINOIN
     Indication: ACUTE PROMYELOCYTIC LEUKAEMIA
     Dates: start: 201907
  3. TANATRIL [Concomitant]
     Active Substance: IMIDAPRIL
     Indication: CARDIAC DYSFUNCTION
     Dosage: 1 DOSAGE FORMS DAILY;
  4. TRISENOX [Suspect]
     Active Substance: ARSENIC TRIOXIDE
     Indication: ACUTE PROMYELOCYTIC LEUKAEMIA
     Dosage: 12 MILLIGRAM DAILY;
     Route: 041
     Dates: start: 20190515, end: 20190709

REACTIONS (2)
  - Interstitial lung disease [Recovered/Resolved]
  - Hypokalaemia [Recovered/Resolved]

NARRATIVE: CASE EVENT DATE: 20190701
